FAERS Safety Report 7972892-0 (Version None)
Quarter: 2011Q4

REPORT INFORMATION
  Report Type: 
  Country: None (occurrence: None)
  Receive Date: 20111213
  Receipt Date: 20110711
  Transmission Date: 20120403
  Serious: No
  Sender: FDA-Public Use
  Company Number: US-MYLANLABS-2011S1014590

PATIENT
  Sex: Female

DRUGS (11)
  1. ADVAIR DISKUS 100/50 [Concomitant]
  2. ALLEGRA [Concomitant]
  3. NAMENDA [Concomitant]
  4. DOXYCYCLINE [Suspect]
     Indication: BRONCHITIS
     Route: 048
     Dates: start: 20090101, end: 20090101
  5. SINGULAIR [Concomitant]
  6. NASACORT [Concomitant]
  7. WELLBUTRIN [Concomitant]
  8. IPRATROPIUM BROMIDE [Concomitant]
  9. TOPAMAX [Concomitant]
  10. MULTI-VITAMIN [Concomitant]
  11. CALCIUM [Concomitant]

REACTIONS (2)
  - RASH [None]
  - PRURITUS [None]
